FAERS Safety Report 15779410 (Version 1)
Quarter: 2019Q1

REPORT INFORMATION
  Report Type: Spontaneous
  Country: FR (occurrence: FR)
  Receive Date: 20190101
  Receipt Date: 20190101
  Transmission Date: 20190417
  Serious: Yes (Other)
  Sender: FDA-Public Use
  Company Number: FR-ELI_LILLY_AND_COMPANY-FR201812009813

PATIENT
  Sex: Male

DRUGS (4)
  1. ABASAGLAR [Suspect]
     Active Substance: INSULIN GLARGINE
     Dosage: 3 U, BID
     Route: 065
  2. HUMALOG [Suspect]
     Active Substance: INSULIN LISPRO
     Indication: DIABETES MELLITUS
     Dosage: UNK UNK, TWO IN THE MORNING, ONE AT NOON
     Route: 065
  3. HUMALOG [Suspect]
     Active Substance: INSULIN LISPRO
     Dosage: 3 U, BID
     Route: 065
  4. ABASAGLAR [Suspect]
     Active Substance: INSULIN GLARGINE
     Indication: DIABETES MELLITUS
     Dosage: UNK UNK, TWO IN THE MORNING, ONE AT NOON
     Route: 065

REACTIONS (10)
  - Cataract [Unknown]
  - Peripheral swelling [Unknown]
  - Blood glucose decreased [Unknown]
  - Decreased appetite [Unknown]
  - Tremor [Unknown]
  - Gait disturbance [Unknown]
  - Abdominal pain upper [Unknown]
  - Somnolence [Unknown]
  - Blood glucose abnormal [Unknown]
  - Visual impairment [Unknown]
